FAERS Safety Report 6722890-X (Version None)
Quarter: 2010Q2

REPORT INFORMATION
  Report Type: 
  Country: None (occurrence: None)
  Receive Date: 20100512
  Receipt Date: 20100512
  Transmission Date: 20101027
  Serious: Yes (Death)
  Sender: FDA-Public Use
  Company Number: None

PATIENT
  Age: 65 Year
  Sex: Male

DRUGS (5)
  1. REVLIMID [Suspect]
     Indication: MULTIPLE MYELOMA
     Dosage: 5MG DAILY FOR 21D/28D ORALLY
     Route: 048
  2. DECADRON [Concomitant]
  3. DOXIL [Concomitant]
  4. VINCRISTINE [Concomitant]
  5. OMEPRAZOLE [Concomitant]

REACTIONS (2)
  - PANCYTOPENIA [None]
  - THERAPEUTIC RESPONSE DECREASED [None]
